FAERS Safety Report 25387233 (Version 2)
Quarter: 2025Q3

REPORT INFORMATION
  Report Type: Spontaneous
  Country: US (occurrence: US)
  Receive Date: 20250602
  Receipt Date: 20250717
  Transmission Date: 20251021
  Serious: No
  Sender: BRISTOL-MYERS SQUIBB COMPANY
  Company Number: US-BRISTOL-MYERS SQUIBB COMPANY-2025-078353

PATIENT
  Age: 53 Year
  Sex: Female

DRUGS (2)
  1. ZEPOSIA [Suspect]
     Active Substance: OZANIMOD HYDROCHLORIDE
     Indication: Multiple sclerosis
     Route: 048
  2. FLUCONAZOLE [Suspect]
     Active Substance: FLUCONAZOLE
     Indication: Product used for unknown indication

REACTIONS (3)
  - Feeling abnormal [Unknown]
  - Sinusitis [Unknown]
  - White blood cell count decreased [Unknown]
